FAERS Safety Report 9034369 (Version 1)
Quarter: 2013Q1

REPORT INFORMATION
  Report Type: Spontaneous
  Country: US (occurrence: US)
  Receive Date: 20130128
  Receipt Date: 20130128
  Transmission Date: 20140127
  Serious: Yes (Other)
  Sender: FDA-Public Use
  Company Number: US-AMGEN-USASP2012079060

PATIENT
  Age: 56 Year
  Sex: Male
  Weight: 104.31 kg

DRUGS (9)
  1. ENBREL [Suspect]
     Indication: ANKYLOSING SPONDYLITIS
     Dosage: 50 MG, WEEKLY
     Route: 058
  2. HUMIRA [Concomitant]
     Dosage: 40 MG, UNK
  3. ACTONEL [Concomitant]
     Dosage: 5 MG, UNK
  4. BISOPROL [Concomitant]
     Dosage: 10 MG, UNK
  5. ALEVE [Concomitant]
     Dosage: 220 MG, UNK
  6. CALCIUM [Concomitant]
     Dosage: 500 MG, UNK
  7. VITAMIN D /00107901/ [Concomitant]
     Dosage: 1000 UNIT, UNK
  8. MULTIVITAMINS, PLAIN [Concomitant]
     Dosage: UNK
  9. PRILOSEC                           /00661201/ [Concomitant]
     Dosage: 10 MG, UNK

REACTIONS (4)
  - Cholecystitis [Unknown]
  - Iritis [Unknown]
  - Colitis ulcerative [Unknown]
  - Gastrooesophageal reflux disease [Unknown]
